FAERS Safety Report 17938917 (Version 3)
Quarter: 2020Q4

REPORT INFORMATION
  Report Type: Other
  Country: CZ (occurrence: CZ)
  Receive Date: 20200625
  Receipt Date: 20201125
  Transmission Date: 20210113
  Serious: Yes (Other)
  Sender: FDA-Public Use
  Company Number: CZ-ROCHE-2629513

PATIENT
  Age: 49 Year
  Sex: Male

DRUGS (2)
  1. BENDAMUSTINE [Suspect]
     Active Substance: BENDAMUSTINE
     Indication: B-CELL LYMPHOMA
     Dosage: DAY 1-2 IN EACH CYCLE (IN COMBINATION WITH OBINUTUZUMAB)
     Route: 042
     Dates: start: 201712
  2. OBINUTUZUMAB. [Suspect]
     Active Substance: OBINUTUZUMAB
     Indication: B-CELL LYMPHOMA
     Dosage: 6 CYCLES (IN DOSE 1000MG I.V. DAY 1,8, 15 IN 1ST CYCLE AND DAY 1 IN NEXT CYCLES)
     Route: 042
     Dates: start: 201712

REACTIONS (1)
  - Supraventricular tachycardia [Recovered/Resolved]
